FAERS Safety Report 20851480 (Version 1)
Quarter: 2022Q2

REPORT INFORMATION
  Report Type: Spontaneous
  Country: US (occurrence: US)
  Receive Date: 20220519
  Receipt Date: 20220519
  Transmission Date: 20220721
  Serious: Yes (Other)
  Sender: FDA-Public Use
  Company Number: US-ALVOGEN-2022-ALVOGEN-120389

PATIENT
  Age: 55 Year
  Sex: Female

DRUGS (9)
  1. DEXAMETHASONE [Suspect]
     Active Substance: DEXAMETHASONE
     Indication: Acute myeloid leukaemia
  2. ADRIAMYCIN [Suspect]
     Active Substance: DOXORUBICIN HYDROCHLORIDE
     Indication: Acute myeloid leukaemia
  3. CYCLOPHOSPHAMIDE [Suspect]
     Active Substance: CYCLOPHOSPHAMIDE
     Indication: Acute myeloid leukaemia
  4. MIDOSTAURIN [Suspect]
     Active Substance: MIDOSTAURIN
     Indication: Acute myeloid leukaemia
  5. VINCRISTINE [Suspect]
     Active Substance: VINCRISTINE
     Indication: Acute myeloid leukaemia
  6. METHOTREXATE [Concomitant]
     Active Substance: METHOTREXATE
     Indication: CSF test abnormal
  7. CYTARABINE [Concomitant]
     Active Substance: CYTARABINE
     Indication: CSF test abnormal
  8. GILTERITINIB [Concomitant]
     Active Substance: GILTERITINIB
     Indication: Acute myeloid leukaemia
  9. AZACITIDINE [Concomitant]
     Active Substance: AZACITIDINE
     Indication: Acute myeloid leukaemia

REACTIONS (11)
  - Acute myocardial infarction [Unknown]
  - Cerebrovascular accident [Unknown]
  - Epistaxis [Unknown]
  - Anaemia [Unknown]
  - Thrombocytopenia [Unknown]
  - Febrile neutropenia [Unknown]
  - Jugular vein thrombosis [Unknown]
  - Otitis media acute [Unknown]
  - Mouth ulceration [Unknown]
  - Oral herpes [Unknown]
  - Influenza [Unknown]
